FAERS Safety Report 6946364-6 (Version None)
Quarter: 2010Q3

REPORT INFORMATION
  Report Type: 
  Country: None (occurrence: None)
  Receive Date: 20100824
  Receipt Date: 20100816
  Transmission Date: 20110219
  Serious: Yes (Life-Threatening, Hospitalization)
  Sender: FDA-Public Use
  Company Number: 2010SP044444

PATIENT
  Age: 52 Year
  Sex: Male

DRUGS (6)
  1. SAPHRIS [Suspect]
     Indication: SCHIZOPHRENIA
     Dosage: ; BID; PO
     Route: 048
     Dates: start: 20100701, end: 20100728
  2. TRAZODONE HCL [Concomitant]
  3. ZOLOFT [Concomitant]
  4. ATIVAN [Concomitant]
  5. CYNTHROID [Concomitant]
  6. VYTORIN [Concomitant]

REACTIONS (5)
  - HALLUCINATION, AUDITORY [None]
  - LEGAL PROBLEM [None]
  - SELF INJURIOUS BEHAVIOUR [None]
  - SHOPLIFTING [None]
  - SUICIDAL IDEATION [None]
